FAERS Safety Report 16263372 (Version 2)
Quarter: 2019Q2

REPORT INFORMATION
  Report Type: Spontaneous
  Country: RU (occurrence: RU)
  Receive Date: 20190502
  Receipt Date: 20190506
  Transmission Date: 20190711
  Serious: No
  Sender: FDA-Public Use
  Company Number: RU-BIOGEN-2019BI00731877

PATIENT
  Age: 57 Year
  Sex: Female

DRUGS (1)
  1. PLEGRIDY [Suspect]
     Active Substance: PEGINTERFERON BETA-1A
     Indication: RELAPSING-REMITTING MULTIPLE SCLEROSIS
     Route: 065
     Dates: start: 20190419

REACTIONS (6)
  - Injection site pruritus [Recovered/Resolved]
  - Ill-defined disorder [Recovered/Resolved]
  - Injection site erythema [Recovered/Resolved]
  - Visual impairment [Unknown]
  - Asthenia [Unknown]
  - Pyrexia [Recovered/Resolved]

NARRATIVE: CASE EVENT DATE: 20190419
